FAERS Safety Report 9088149 (Version 1)
Quarter: 2013Q1

REPORT INFORMATION
  Report Type: Report from Study
  Country: PR (occurrence: PR)
  Receive Date: 20130201
  Receipt Date: 20130201
  Transmission Date: 20140127
  Serious: No
  Sender: FDA-Public Use
  Company Number: PR-ABBOTT-12P-131-0900627-00

PATIENT
  Age: 58 None
  Sex: Female
  Weight: 72.64 kg

DRUGS (6)
  1. HUMIRA [Suspect]
     Indication: RHEUMATOID ARTHRITIS
     Route: 058
     Dates: start: 2009, end: 2012
  2. HUMIRA [Suspect]
     Route: 058
     Dates: start: 2012
  3. BENICAR [Concomitant]
     Indication: HYPERTENSION
     Dosage: 12.5/20 MG-1 TABLET DAILY
     Route: 048
  4. ULTRAM [Concomitant]
     Indication: RHEUMATOID ARTHRITIS
     Dosage: 1 TABLET DAILY
     Route: 048
  5. CATEFLAM [Concomitant]
     Indication: RHEUMATOID ARTHRITIS
     Dosage: 1 TABLET PRN
     Route: 048
  6. MEDROL [Concomitant]
     Indication: RHEUMATOID ARTHRITIS
     Dosage: 1 TABLET DAILY
     Route: 048

REACTIONS (2)
  - Nasopharyngitis [Recovered/Resolved]
  - Nasopharyngitis [Recovering/Resolving]
